FAERS Safety Report 24035652 (Version 1)
Quarter: 2024Q3

REPORT INFORMATION
  Report Type: Report from Study
  Country: US (occurrence: US)
  Receive Date: 20240701
  Receipt Date: 20240701
  Transmission Date: 20241016
  Serious: Yes (Other)
  Sender: BAYER
  Company Number: US-BAYER-2024A091933

PATIENT

DRUGS (3)
  1. ASPIRIN [Suspect]
     Active Substance: ASPIRIN
  2. WARFARIN [Concomitant]
     Active Substance: WARFARIN
  3. APIXABAN [Concomitant]
     Active Substance: APIXABAN

REACTIONS (1)
  - Cerebral haemorrhage [None]
